FAERS Safety Report 18375368 (Version 1)
Quarter: 2020Q4

REPORT INFORMATION
  Report Type: Spontaneous
  Country: US (occurrence: US)
  Receive Date: 20201011
  Receipt Date: 20201011
  Transmission Date: 20210114
  Serious: Yes (Other)
  Sender: FDA-Public Use
  Company Number: None

PATIENT
  Age: 33 Year
  Sex: Male
  Weight: 76.4 kg

DRUGS (4)
  1. MONTELEUKAST DAILY [Concomitant]
     Dates: start: 20201006, end: 20201011
  2. REMDESIVIR. [Suspect]
     Active Substance: REMDESIVIR
     Indication: COVID-19
  3. DEXAMETHASONE 6 MG DAILY [Concomitant]
     Dates: start: 20201006, end: 20201011
  4. IVERMECTIN 18 MG X1 [Concomitant]
     Dates: start: 20201008, end: 20201008

REACTIONS (1)
  - Liver injury [None]

NARRATIVE: CASE EVENT DATE: 20201010
